FAERS Safety Report 14563869 (Version 1)
Quarter: 2018Q1

REPORT INFORMATION
  Report Type: Spontaneous
  Country: US (occurrence: US)
  Receive Date: 20180222
  Receipt Date: 20180222
  Transmission Date: 20180509
  Serious: Yes (Hospitalization)
  Sender: FDA-Public Use
  Company Number: US-BAUSCH-BL-2018-004636

PATIENT
  Age: 77 Year
  Sex: Male

DRUGS (2)
  1. DESMOPRESSIN ACETATE NASAL SOLUTION 0.01% [Suspect]
     Active Substance: DESMOPRESSIN ACETATE
     Dosage: CHANGE IN THE DOSING SCHEDULE
     Route: 045
  2. DESMOPRESSIN ACETATE NASAL SOLUTION 0.01% [Suspect]
     Active Substance: DESMOPRESSIN ACETATE
     Indication: HYPOTHALAMO-PITUITARY DISORDER
     Dosage: 1 SPRAY INTRANASALLY 5 TO 6 TIMES DAILY AS NEEDED MANY?YEARS AGO
     Route: 045

REACTIONS (4)
  - Peripheral swelling [Not Recovered/Not Resolved]
  - Oedema peripheral [Not Recovered/Not Resolved]
  - Expired product administered [Unknown]
  - Cerebrovascular accident [Recovering/Resolving]

NARRATIVE: CASE EVENT DATE: 2018
